FAERS Safety Report 9157830 (Version 1)
Quarter: 2013Q1

REPORT INFORMATION
  Report Type: Spontaneous
  Country: AR (occurrence: AR)
  Receive Date: 20130312
  Receipt Date: 20130312
  Transmission Date: 20140127
  Serious: Yes (Hospitalization)
  Sender: FDA-Public Use
  Company Number: PHHY2013AR024003

PATIENT
  Sex: Male

DRUGS (1)
  1. EXELON PATCH [Suspect]
     Indication: CEREBROVASCULAR ACCIDENT
     Dosage: 4.6 MG, (PATCH 5 CM2), DAILY
     Route: 062
     Dates: start: 201302, end: 20130304

REACTIONS (3)
  - Bronchitis [Recovering/Resolving]
  - Thermal burn [Unknown]
  - Fall [Unknown]
